FAERS Safety Report 15360073 (Version 3)
Quarter: 2018Q3

REPORT INFORMATION
  Report Type: Spontaneous
  Country: US (occurrence: US)
  Receive Date: 20180907
  Receipt Date: 20180924
  Transmission Date: 20181010
  Serious: Yes (Other)
  Sender: FDA-Public Use
  Company Number: US-009507513-1808USA013259

PATIENT
  Age: 33 Year
  Sex: Female

DRUGS (10)
  1. NOVAREL [Concomitant]
     Active Substance: CHORIOGONADOTROPIN ALFA
  2. CIPRO [Concomitant]
     Active Substance: CIPROFLOXACIN HYDROCHLORIDE
  3. MENOPUR [Concomitant]
     Active Substance: FOLLITROPIN\LUTEINIZING HORMONE
  4. LEUPROLIDE [Concomitant]
     Active Substance: LEUPROLIDE
  5. FOLLISTIM [Suspect]
     Active Substance: FOLLITROPIN
     Indication: INFERTILITY
     Dosage: 225 IU TO 300 IU, EVERY EVENING
     Route: 058
     Dates: start: 20180320
  6. IBUPROFEN. [Concomitant]
     Active Substance: IBUPROFEN
  7. FOLIC ACID. [Concomitant]
     Active Substance: FOLIC ACID
  8. PROGESTERONE. [Concomitant]
     Active Substance: PROGESTERONE
  9. DEXAMETHASONE. [Concomitant]
     Active Substance: DEXAMETHASONE
  10. ESTRADIOL. [Concomitant]
     Active Substance: ESTRADIOL

REACTIONS (1)
  - Surgery [Unknown]

NARRATIVE: CASE EVENT DATE: 20180829
